FAERS Safety Report 21840711 (Version 2)
Quarter: 2023Q1

REPORT INFORMATION
  Report Type: Report from Study
  Country: US (occurrence: US)
  Receive Date: 20230110
  Receipt Date: 20230216
  Transmission Date: 20230417
  Serious: Yes (Other)
  Sender: FDA-Public Use
  Company Number: US-SUN PHARMACEUTICAL INDUSTRIES LTD-2022R1-372546

PATIENT
  Age: 54 Year
  Sex: Female

DRUGS (1)
  1. DECADRON [Suspect]
     Active Substance: DEXAMETHASONE
     Indication: Meningioma
     Dosage: 10 MILLIGRAM, QID
     Route: 065

REACTIONS (2)
  - Partial seizures [Unknown]
  - Muscular weakness [Unknown]
